FAERS Safety Report 14509402 (Version 1)
Quarter: 2018Q1

REPORT INFORMATION
  Report Type: Spontaneous
  Country: US (occurrence: US)
  Receive Date: 20180209
  Receipt Date: 20180209
  Transmission Date: 20180509
  Serious: Yes (Other)
  Sender: FDA-Public Use
  Company Number: US-RECKITT BENCKISER HEALTHCARE INT LIMITED-RB-81949-2018

PATIENT
  Age: 32 Year
  Sex: Male

DRUGS (1)
  1. MUCINEX SINUS-MAX SEVERE CONGESTION RELIEF [Suspect]
     Active Substance: ACETAMINOPHEN\GUAIFENESIN\PHENYLEPHRINE HYDROCHLORIDE
     Indication: SINUS CONGESTION
     Dosage: ONE DOSE SPACED FOUR HOURS APART
     Route: 065
     Dates: start: 20180202

REACTIONS (4)
  - Dyspnoea [Unknown]
  - Dysphagia [Not Recovered/Not Resolved]
  - Hot flush [Unknown]
  - Throat irritation [Unknown]

NARRATIVE: CASE EVENT DATE: 20180204
